FAERS Safety Report 18353880 (Version 1)
Quarter: 2020Q4

REPORT INFORMATION
  Report Type: Other
  Country: US (occurrence: US)
  Receive Date: 20201007
  Receipt Date: 20201007
  Transmission Date: 20210114
  Serious: Yes (Other)
  Sender: FDA-Public Use
  Company Number: US-ROCHE-2670849

PATIENT
  Sex: Female
  Weight: 60.38 kg

DRUGS (5)
  1. RITALIN [Concomitant]
     Active Substance: METHYLPHENIDATE HYDROCHLORIDE
     Dosage: 1-2 TABLETS 1-AM, 1/2 TO 1 TABLET IF NEEDED IN THE AFTERNOON
     Route: 048
  2. AMANTADINE. [Concomitant]
     Active Substance: AMANTADINE HYDROCHLORIDE
     Route: 048
  3. OCREVUS [Suspect]
     Active Substance: OCRELIZUMAB
     Indication: RELAPSING MULTIPLE SCLEROSIS
     Dosage: 300MG ON DAY 1, FOLLOWED BY 300 MG 2 WEEKS LATER
     Route: 042
     Dates: start: 20200318
  4. MODAFINIL. [Concomitant]
     Active Substance: MODAFINIL
     Dosage: IN THE MORNING
     Route: 048
  5. METHYLPHENIDATE HYDROCHLORIDE. [Concomitant]
     Active Substance: METHYLPHENIDATE HYDROCHLORIDE
     Route: 048

REACTIONS (1)
  - Breast cancer [Not Recovered/Not Resolved]
